FAERS Safety Report 7747522-3 (Version None)
Quarter: 2011Q3

REPORT INFORMATION
  Report Type: 
  Country: None (occurrence: None)
  Receive Date: 20110913
  Receipt Date: 20110913
  Transmission Date: 20111222
  Serious: Yes (Hospitalization)
  Sender: FDA-Public Use
  Company Number: IT-PFIZER INC-2011204194

PATIENT
  Age: 65 Year
  Sex: Female

DRUGS (2)
  1. IDROQUARK [Concomitant]
     Route: 048
  2. MEDROL [Suspect]
     Indication: MUSCULOSKELETAL PAIN
     Dosage: 4 MG, DAILY
     Route: 048
     Dates: start: 20110714, end: 20110814

REACTIONS (1)
  - ABDOMINAL PAIN UPPER [None]
